FAERS Safety Report 7660535-5 (Version None)
Quarter: 2011Q3

REPORT INFORMATION
  Report Type: 
  Country: None (occurrence: None)
  Receive Date: 20110805
  Receipt Date: 20110727
  Transmission Date: 20111222
  Serious: Yes (Hospitalization, Disabling, Other)
  Sender: FDA-Public Use
  Company Number: US-ASTRAZENECA-2011SE41290

PATIENT
  Age: 60 Year
  Sex: Female

DRUGS (1)
  1. CRESTOR [Suspect]
     Route: 048

REACTIONS (5)
  - IATROGENIC INJURY [None]
  - ARTERIOVENOUS FISTULA OPERATION [None]
  - HAND AMPUTATION [None]
  - ARTERIOVENOUS FISTULA OCCLUSION [None]
  - THERAPEUTIC PROCEDURE [None]
